FAERS Safety Report 5362727-7 (Version None)
Quarter: 2007Q2

REPORT INFORMATION
  Report Type: 
  Country: None (occurrence: None)
  Receive Date: 20070619
  Receipt Date: 20070612
  Transmission Date: 20071010
  Serious: Yes (Death, Hospitalization)
  Sender: FDA-Public Use
  Company Number: CH-ROXANE LABORATORIES, INC-2007-BP-08457RO

PATIENT
  Age: 53 Year
  Sex: Female

DRUGS (12)
  1. METHADONE HCL [Suspect]
     Indication: DRUG WITHDRAWAL MAINTENANCE THERAPY
     Dosage: 75 MG TWICE DAILY
     Dates: end: 20060101
  2. TENOFOVIR [Suspect]
     Indication: HIV INFECTION
     Dates: start: 20040701, end: 20060101
  3. DIDANOSINE [Suspect]
     Indication: HIV INFECTION
     Dates: start: 20040701, end: 20060101
  4. FOS-AMPRENAVIR [Suspect]
     Indication: HIV INFECTION
     Dates: start: 20040701, end: 20060101
  5. LOPINAVIR-RITONAVIR [Suspect]
     Indication: HIV INFECTION
     Dosage: 400 MG/100 MG TWICE A DAY
     Dates: start: 20040701, end: 20060101
  6. MORPHINE [Suspect]
     Indication: DRUG WITHDRAWAL MAINTENANCE THERAPY
     Dates: start: 20060101
  7. TIPRANAVIR-RITONAVIR [Suspect]
     Indication: HIV INFECTION
     Dates: start: 20060201
  8. NEVIRAPINE [Suspect]
     Indication: HIV INFECTION
     Dates: start: 20060201
  9. LAMIVUDINE [Suspect]
     Indication: HIV INFECTION
     Dates: start: 20060201
  10. METHYLPHENIDATE HCL [Concomitant]
     Indication: DRUG WITHDRAWAL MAINTENANCE THERAPY
  11. OXAZEPAM [Concomitant]
     Indication: ANXIETY
  12. PAROXETINE [Concomitant]
     Indication: ANXIETY

REACTIONS (9)
  - ASCITES [None]
  - BLOOD POTASSIUM DECREASED [None]
  - DRUG INTERACTION [None]
  - ELECTROCARDIOGRAM QT PROLONGED [None]
  - HEPATIC CIRRHOSIS [None]
  - HEPATIC FAILURE [None]
  - HYPERLACTACIDAEMIA [None]
  - PALPITATIONS [None]
  - TORSADE DE POINTES [None]
